FAERS Safety Report 9564136 (Version 6)
Quarter: 2014Q2

REPORT INFORMATION
  Report Type: Spontaneous
  Country: US (occurrence: US)
  Receive Date: 20130929
  Receipt Date: 20140620
  Transmission Date: 20141212
  Serious: Yes (Hospitalization, Other)
  Sender: FDA-Public Use
  Company Number: US-009507513-1309USA003175

PATIENT
  Sex: Male

DRUGS (10)
  1. VICTRELIS [Suspect]
     Indication: HEPATITIS C
     Dosage: 800 MG (200 MG 4 CAPSULES), TID
     Route: 048
     Dates: start: 2013, end: 2013
  2. VICTRELIS [Suspect]
     Dosage: 800 MG (200 MG 4 CAPSULES), TID
     Route: 048
     Dates: start: 201308, end: 201401
  3. PEGASYS [Suspect]
     Dosage: UNK
     Dates: start: 2013
  4. RIBASPHERE [Suspect]
     Dosage: UNK
     Route: 048
     Dates: start: 201307
  5. PRILOSEC [Concomitant]
     Dosage: UNK
     Route: 048
  6. SUBOXONE [Concomitant]
     Dosage: UNK
     Route: 048
  7. PROCRIT [Concomitant]
     Dosage: UNK
  8. ZOFRAN [Concomitant]
     Dosage: UNK
  9. AMOXICILLIN [Concomitant]
     Dosage: UNK
  10. EPIPEN [Concomitant]
     Dosage: UNK

REACTIONS (15)
  - Peripheral embolism [Recovered/Resolved]
  - Pulmonary embolism [Recovered/Resolved]
  - Haemoptysis [Recovered/Resolved]
  - Decreased appetite [Recovering/Resolving]
  - Feeling hot [Recovering/Resolving]
  - White blood cell count decreased [Recovering/Resolving]
  - Abdominal discomfort [Recovering/Resolving]
  - Dehydration [Recovering/Resolving]
  - Dysgeusia [Unknown]
  - Nausea [Recovering/Resolving]
  - Dizziness [Recovering/Resolving]
  - Asthenia [Recovering/Resolving]
  - Fatigue [Recovering/Resolving]
  - Haemoglobin decreased [Recovering/Resolving]
  - Nausea [Unknown]
